FAERS Safety Report 7773768-4 (Version None)
Quarter: 2011Q3

REPORT INFORMATION
  Report Type: 
  Country: None (occurrence: None)
  Receive Date: 20110921
  Receipt Date: 20110906
  Transmission Date: 20111222
  Serious: Yes (Other)
  Sender: FDA-Public Use
  Company Number: AUR-APL-2011-04994

PATIENT
  Age: 27 Year
  Sex: Female

DRUGS (1)
  1. CITALOPRAM HYDROBROMIDE [Suspect]
     Indication: PRODUCT USED FOR UNKNOWN INDICATION
     Dosage: 40 MG (40 MG, 1 IN 1D); 50 MG (50 MG, 1 IN 1 D); 60 MG (60 MG, 1 IN 1 D)

REACTIONS (5)
  - DEPRESSION [None]
  - AGITATION [None]
  - CONDITION AGGRAVATED [None]
  - MORBID THOUGHTS [None]
  - SUICIDAL IDEATION [None]
